FAERS Safety Report 6738713-9 (Version None)
Quarter: 2010Q2

REPORT INFORMATION
  Report Type: 
  Country: None (occurrence: None)
  Receive Date: 20100520
  Receipt Date: 20100505
  Transmission Date: 20101027
  Serious: Yes (Other)
  Sender: FDA-Public Use
  Company Number: 584956

PATIENT

DRUGS (4)
  1. CARBOPLATIN [Suspect]
     Indication: GERM CELL CANCER
     Dosage: 500 MG/ M2 MILLIGRAM (S) /SQ. METER,
  2. ETOPOSIDE [Suspect]
     Indication: GERM CELL CANCER
     Dosage: 250 MG/M2 MILLIGRAM (S)/ SQ, METER
  3. CYCLOPHOSPHAMIDE [Suspect]
     Indication: GERM CELL CANCER
  4. THIOTEPA [Suspect]
     Indication: GERM CELL CANCER
     Dosage: 300 MG/M2 MILLIGRAM(S) /SQ. METER,

REACTIONS (5)
  - CYSTITIS HAEMORRHAGIC [None]
  - HAEMATOTOXICITY [None]
  - MUCOSAL INFLAMMATION [None]
  - NEUTROPENIA [None]
  - URINARY TRACT INFECTION [None]
